FAERS Safety Report 23278728 (Version 2)
Quarter: 2024Q4

REPORT INFORMATION
  Report Type: Spontaneous
  Country: US (occurrence: US)
  Receive Date: 20231208
  Receipt Date: 20241206
  Transmission Date: 20250115
  Serious: No
  Sender: NOVO NORDISK
  Company Number: US-NOVOPROD-1101353

PATIENT
  Sex: Female

DRUGS (1)
  1. NOVOLIN R [Suspect]
     Active Substance: INSULIN HUMAN
     Indication: Type 1 diabetes mellitus
     Dosage: UNK
     Route: 058
     Dates: start: 202307

REACTIONS (12)
  - Heart rate increased [Unknown]
  - Dyspnoea [Unknown]
  - Pyrexia [Unknown]
  - Chills [Unknown]
  - Bone pain [Unknown]
  - Headache [Unknown]
  - Nausea [Unknown]
  - Asthenia [Unknown]
  - Pain [Unknown]
  - Blood glucose increased [Unknown]
  - Poor quality product administered [Unknown]
  - Liquid product physical issue [Unknown]

NARRATIVE: CASE EVENT DATE: 20230718
